FAERS Safety Report 7206629-X (Version None)
Quarter: 2011Q1

REPORT INFORMATION
  Report Type: 
  Country: None (occurrence: None)
  Receive Date: 20110103
  Receipt Date: 20101223
  Transmission Date: 20110831
  Serious: Yes (Other)
  Sender: FDA-Public Use
  Company Number: SE-JNJFOC-20101207581

PATIENT
  Sex: Male

DRUGS (1)
  1. HALDOL [Suspect]
     Indication: SCHIZOPHRENIA
     Route: 065

REACTIONS (5)
  - WEIGHT INCREASED [None]
  - EAR DISORDER [None]
  - DIABETES MELLITUS [None]
  - ERECTILE DYSFUNCTION [None]
  - INFERTILITY [None]
